FAERS Safety Report 25346325 (Version 3)
Quarter: 2025Q4

REPORT INFORMATION
  Report Type: Report from Study
  Country: JP (occurrence: JP)
  Receive Date: 20250522
  Receipt Date: 20251030
  Transmission Date: 20260117
  Serious: Yes (Other)
  Sender: ROCHE
  Company Number: JP-CHUGAI-2024044291

PATIENT
  Age: 60 Year
  Sex: Female

DRUGS (4)
  1. PIASKY [Suspect]
     Active Substance: CROVALIMAB-AKKZ
     Indication: Paroxysmal nocturnal haemoglobinuria
     Dosage: 1020 MILLIGRAM
     Route: 058
     Dates: start: 20240920
  2. CLARITHROMYCIN [Concomitant]
     Active Substance: CLARITHROMYCIN
     Indication: Infection prophylaxis
     Dosage: UNK
     Route: 065
     Dates: start: 20241108, end: 20241114
  3. GETACATETIDE ACETATE [Concomitant]
     Active Substance: GETACATETIDE ACETATE
     Dosage: UNK
     Route: 065
     Dates: start: 20241108, end: 20241128
  4. CARBOCYSTEINE [Concomitant]
     Active Substance: CARBOCYSTEINE
     Dosage: UNK
     Route: 065
     Dates: start: 20241108, end: 20241128

REACTIONS (5)
  - Off label use [Unknown]
  - Pyrexia [Unknown]
  - Headache [Unknown]
  - Anaemia [Recovered/Resolved]
  - Nasopharyngitis [Recovered/Resolved]

NARRATIVE: CASE EVENT DATE: 20240920
